FAERS Safety Report 8588973-7 (Version None)
Quarter: 2012Q3

REPORT INFORMATION
  Report Type: 
  Country: None (occurrence: None)
  Receive Date: 20120813
  Receipt Date: 20120803
  Transmission Date: 20120928
  Serious: Yes (Hospitalization)
  Sender: FDA-Public Use
  Company Number: FR-SANOFI-AVENTIS-2012SA055555

PATIENT
  Age: 80 Year
  Sex: Female

DRUGS (9)
  1. LEVOTHYROXINE SODIUM [Concomitant]
  2. CLAFORAN [Suspect]
     Route: 042
     Dates: start: 20120713, end: 20120714
  3. FOSAMAX [Concomitant]
  4. OLMESARTAN MEDOXOMIL [Concomitant]
  5. CRESTOR [Concomitant]
  6. TRAMADOL HCL [Concomitant]
  7. MORPHINE SULFATE [Concomitant]
  8. XYZAL [Concomitant]
  9. IMOVANE [Concomitant]

REACTIONS (1)
  - ACUTE GENERALISED EXANTHEMATOUS PUSTULOSIS [None]
